FAERS Safety Report 20728297 (Version 1)
Quarter: 2022Q2

REPORT INFORMATION
  Report Type: Spontaneous
  Country: US (occurrence: None)
  Receive Date: 20220420
  Receipt Date: 20220420
  Transmission Date: 20220720
  Serious: Yes (Other)
  Sender: FDA-Public Use
  Company Number: US-IBSA PHARMA INC.-2022-IBS-01829

PATIENT
  Age: 62 Year

DRUGS (2)
  1. DICLOFENAC [Suspect]
     Active Substance: DICLOFENAC
     Indication: Product used for unknown indication
  2. XELJANZ XR [Suspect]
     Active Substance: TOFACITINIB CITRATE
     Indication: Product used for unknown indication

REACTIONS (5)
  - Spinal operation [Unknown]
  - Epigastric discomfort [Unknown]
  - Feeling abnormal [Unknown]
  - Migraine [Unknown]
  - Anaemia [Unknown]

NARRATIVE: CASE EVENT DATE: 20211201
